FAERS Safety Report 24242924 (Version 1)
Quarter: 2024Q3

REPORT INFORMATION
  Report Type: Spontaneous
  Country: FR (occurrence: FR)
  Receive Date: 20240823
  Receipt Date: 20240823
  Transmission Date: 20241016
  Serious: Yes (Other)
  Sender: RANBAXY
  Company Number: FR-SUN PHARMACEUTICAL INDUSTRIES LTD-2024RR-464060

PATIENT
  Age: 22 Year
  Sex: Female
  Weight: 72 kg

DRUGS (3)
  1. GEMCITABINE [Suspect]
     Active Substance: GEMCITABINE
     Indication: Hodgkin^s disease recurrent
     Dosage: 2 CURES
     Route: 040
     Dates: start: 20210726, end: 20210817
  2. VINORELBINE [Suspect]
     Active Substance: VINORELBINE TARTRATE
     Indication: Hodgkin^s disease recurrent
     Dosage: 2 CURES
     Route: 040
     Dates: start: 20210726, end: 20210817
  3. BENDAMUSTINE [Suspect]
     Active Substance: BENDAMUSTINE
     Indication: Hodgkin^s disease recurrent
     Dosage: 1 CURE
     Route: 040
     Dates: start: 20210726, end: 20210817

REACTIONS (4)
  - Hepatic cytolysis [Recovered/Resolved]
  - Headache [Recovered/Resolved]
  - Urticaria [Recovered/Resolved]
  - Pyrexia [Recovered/Resolved]

NARRATIVE: CASE EVENT DATE: 20210809
